FAERS Safety Report 5222512-3 (Version None)
Quarter: 2007Q1

REPORT INFORMATION
  Report Type: 
  Country: None (occurrence: None)
  Receive Date: 20070129
  Receipt Date: 20070116
  Transmission Date: 20070707
  Serious: Yes (Hospitalization, Other)
  Sender: FDA-Public Use
  Company Number: NO-BRISTOL-MYERS SQUIBB COMPANY-13648985

PATIENT
  Age: 75 Year
  Sex: Female

DRUGS (7)
  1. METFORMIN HCL [Suspect]
     Indication: DIABETES MELLITUS
  2. GLIPIZIDE [Suspect]
     Indication: DIABETES MELLITUS
  3. WARFARIN SODIUM [Suspect]
  4. ENALAPRIL MALEATE [Suspect]
  5. LEVOTHYROXINE SODIUM [Concomitant]
  6. OLANZAPINE [Concomitant]
  7. ATORVASTATIN CALCIUM [Concomitant]

REACTIONS (2)
  - CARDIOPULMONARY FAILURE [None]
  - LACTIC ACIDOSIS [None]
